FAERS Safety Report 17739790 (Version 1)
Quarter: 2020Q2

REPORT INFORMATION
  Report Type: Spontaneous
  Country: US (occurrence: US)
  Receive Date: 20200504
  Receipt Date: 20200504
  Transmission Date: 20200714
  Serious: Yes (Other)
  Sender: FDA-Public Use
  Company Number: US-TEVA-2020-US-1231523

PATIENT
  Age: 58 Year
  Sex: Male

DRUGS (8)
  1. TRASTUZUMAB. [Concomitant]
     Active Substance: TRASTUZUMAB
     Indication: COLORECTAL CANCER METASTATIC
     Route: 065
  2. FLUOROURACIL. [Suspect]
     Active Substance: FLUOROURACIL
     Indication: COLORECTAL CANCER METASTATIC
     Dosage: FOLFOX REGIMEN
     Route: 065
  3. PERTUZUMAB. [Concomitant]
     Active Substance: PERTUZUMAB
     Indication: COLORECTAL CANCER METASTATIC
  4. OXALIPLATIN. [Suspect]
     Active Substance: OXALIPLATIN
     Indication: COLORECTAL CANCER METASTATIC
     Dosage: FOLFOX REGIMEN
     Route: 065
  5. T-DM1 [Suspect]
     Active Substance: ADO-TRASTUZUMAB EMTANSINE
     Indication: COLORECTAL CANCER METASTATIC
     Dosage: ADMINISTERED EVERY 3 WEEKS
     Route: 065
     Dates: start: 201901
  6. FOLINIC ACID [Suspect]
     Active Substance: LEUCOVORIN
     Indication: COLORECTAL CANCER METASTATIC
     Dosage: FOLFOX REGIMEN
     Route: 065
  7. IRINOTECAN [Concomitant]
     Active Substance: IRINOTECAN
     Indication: COLORECTAL CANCER METASTATIC
     Dosage: FOLFIRI REGIMEN; 22 CYCLES ADMINISTERED
     Route: 065
  8. TIPIRACIL/TRIFLURIDINE [Concomitant]
     Indication: COLORECTAL CANCER METASTATIC
     Route: 065

REACTIONS (2)
  - Off label use [Unknown]
  - Neuropathy peripheral [Unknown]
